FAERS Safety Report 19791202 (Version 1)
Quarter: 2021Q3

REPORT INFORMATION
  Report Type: Spontaneous
  Country: US (occurrence: US)
  Receive Date: 20210906
  Receipt Date: 20210906
  Transmission Date: 20211014
  Serious: Yes (Hospitalization)
  Sender: FDA-Public Use
  Company Number: US-ELI_LILLY_AND_COMPANY-US202109000751

PATIENT
  Age: 62 Year
  Sex: Female

DRUGS (1)
  1. ALIMTA [Suspect]
     Active Substance: PEMETREXED DISODIUM
     Indication: THYMIC CANCER METASTATIC
     Dosage: 100 MG, UNKNOWN
     Route: 041

REACTIONS (2)
  - Off label use [Unknown]
  - Febrile neutropenia [Recovering/Resolving]
